FAERS Safety Report 22867900 (Version 3)
Quarter: 2023Q4

REPORT INFORMATION
  Report Type: Spontaneous
  Country: JP (occurrence: JP)
  Receive Date: 20230825
  Receipt Date: 20231103
  Transmission Date: 20240110
  Serious: Yes (Death, Hospitalization)
  Sender: FDA-Public Use
  Company Number: JP-AMGEN-JPNSP2023102767

PATIENT
  Age: 1 Year
  Sex: Male

DRUGS (6)
  1. BLINCYTO [Suspect]
     Active Substance: BLINATUMOMAB
     Indication: B precursor type acute leukaemia
     Dosage: 5 MICROGRAM/SQ. METER, QD, (FIRST CYCLE), DRIP INFUSION
     Route: 042
     Dates: start: 20230605, end: 20230702
  2. BLINCYTO [Suspect]
     Active Substance: BLINATUMOMAB
     Dosage: SECOND CYCLE, DRIP INFUSION
     Route: 042
     Dates: start: 20230718, end: 20230814
  3. FLUCONAZOLE [Concomitant]
     Active Substance: FLUCONAZOLE
     Dosage: UNK UNK, QD
  4. MICAFUNGIN SODIUM [Concomitant]
     Active Substance: MICAFUNGIN SODIUM
     Dosage: UNK UNK, QD
  5. SULFAMETHOXAZOLE\TRIMETHOPRIM [Concomitant]
     Active Substance: SULFAMETHOXAZOLE\TRIMETHOPRIM
  6. FAMOTIDINE [Concomitant]
     Active Substance: FAMOTIDINE
     Dosage: UNK UNK, BID

REACTIONS (3)
  - Leukaemic infiltration extramedullary [Fatal]
  - Pyrexia [Recovered/Resolved]
  - Tumour associated fever [Recovered/Resolved]

NARRATIVE: CASE EVENT DATE: 20230101
